FAERS Safety Report 21039992 (Version 2)
Quarter: 2022Q3

REPORT INFORMATION
  Report Type: Spontaneous
  Country: US (occurrence: None)
  Receive Date: 20220704
  Receipt Date: 20220729
  Transmission Date: 20221027
  Serious: No
  Sender: FDA-Public Use
  Company Number: 2022A238645

PATIENT
  Age: 75 Year
  Sex: Female
  Weight: 52.6 kg

DRUGS (3)
  1. LYNPARZA [Suspect]
     Active Substance: OLAPARIB
     Indication: Ovarian cancer
     Route: 048
  2. LYNPARZA [Suspect]
     Active Substance: OLAPARIB
     Indication: Ovarian cancer
     Route: 048
  3. LYNPARZA [Suspect]
     Active Substance: OLAPARIB
     Indication: Ovarian cancer
     Route: 048

REACTIONS (13)
  - Off label use [Unknown]
  - Nausea [Unknown]
  - Dizziness [Unknown]
  - Taste disorder [Unknown]
  - Decreased appetite [Unknown]
  - Weight abnormal [Unknown]
  - Diarrhoea [Unknown]
  - Constipation [Unknown]
  - Paraesthesia [Unknown]
  - Myalgia [Unknown]
  - Arthralgia [Unknown]
  - Insomnia [Unknown]
  - Drug intolerance [Unknown]
